FAERS Safety Report 15492566 (Version 1)
Quarter: 2018Q4

REPORT INFORMATION
  Report Type: Spontaneous
  Country: US (occurrence: US)
  Receive Date: 20181012
  Receipt Date: 20181012
  Transmission Date: 20190205
  Serious: Yes (Hospitalization)
  Sender: FDA-Public Use
  Company Number: US-JNJFOC-20181013905

PATIENT
  Age: 60 Year
  Sex: Male
  Weight: 104.78 kg

DRUGS (2)
  1. INVOKANA [Suspect]
     Active Substance: CANAGLIFLOZIN
     Indication: TYPE 2 DIABETES MELLITUS
     Dosage: VARYING DOSES OF 400 MG AND 100 MG
     Route: 048
     Dates: start: 20151112, end: 201605
  2. INVOKANA [Suspect]
     Active Substance: CANAGLIFLOZIN
     Indication: TYPE 2 DIABETES MELLITUS
     Route: 048
     Dates: start: 201605, end: 20171231

REACTIONS (5)
  - Off label use [Unknown]
  - Toe amputation [Unknown]
  - Cellulitis [Unknown]
  - Osteomyelitis [Unknown]
  - Product administration error [Unknown]

NARRATIVE: CASE EVENT DATE: 20151112
